FAERS Safety Report 8232452-3 (Version None)
Quarter: 2012Q1

REPORT INFORMATION
  Report Type: 
  Country: None (occurrence: None)
  Receive Date: 20120323
  Receipt Date: 20120323
  Transmission Date: 20120608
  Serious: Yes (Other)
  Sender: FDA-Public Use
  Company Number: DE-GLAXOSMITHKLINE-D0074692A

PATIENT
  Sex: Female

DRUGS (4)
  1. IBUPROFEN [Concomitant]
     Route: 065
  2. TRAMADOL HYDROCHLORIDE [Concomitant]
     Route: 065
  3. NARATRIPTAN [Suspect]
     Route: 048
  4. ALCOHOL [Concomitant]
     Route: 065

REACTIONS (1)
  - DRUG ABUSE [None]
